FAERS Safety Report 4808179-4 (Version None)
Quarter: 2005Q4

REPORT INFORMATION
  Report Type: 
  Country: None (occurrence: None)
  Receive Date: 20051020
  Receipt Date: 20050926
  Transmission Date: 20060501
  Serious: Yes (Death, Hospitalization)
  Sender: FDA-Public Use
  Company Number: 408921

PATIENT
  Age: 47 Year
  Sex: Female

DRUGS (4)
  1. ERLOTINIB (ERLOTINIB) [Suspect]
     Indication: NON-SMALL CELL LUNG CANCER
     Dosage: 150 MG/ ORAL
     Route: 048
     Dates: start: 20050611
  2. DEBRIDAT (TRIMEBUTINE MALEATE) [Concomitant]
  3. DURAGESIC-100 [Concomitant]
  4. XANAX [Concomitant]

REACTIONS (4)
  - GENERAL PHYSICAL HEALTH DETERIORATION [None]
  - INTRACRANIAL PRESSURE INCREASED [None]
  - METASTASES TO CENTRAL NERVOUS SYSTEM [None]
  - PULMONARY EMBOLISM [None]
